FAERS Safety Report 8263570-1 (Version None)
Quarter: 2012Q2

REPORT INFORMATION
  Report Type: 
  Country: None (occurrence: None)
  Receive Date: 20120405
  Receipt Date: 20120322
  Transmission Date: 20120825
  Serious: Yes (Other)
  Sender: FDA-Public Use
  Company Number: CHPA2012US005677

PATIENT
  Age: 53 Year
  Sex: Male

DRUGS (3)
  1. PHENYLEPHRINE HCL [Suspect]
     Dosage: VARIES
     Route: 045
     Dates: start: 19830101
  2. DRUG THERAPY NOS [Concomitant]
     Dosage: UNK, UNK
  3. ZYRTEC [Concomitant]
     Dosage: UNK, UNK

REACTIONS (7)
  - THERAPEUTIC RESPONSE DECREASED [None]
  - GINGIVAL SWELLING [None]
  - DRUG DEPENDENCE [None]
  - FEELING ABNORMAL [None]
  - REBOUND EFFECT [None]
  - TOOTH ABSCESS [None]
  - NASAL CONGESTION [None]
